FAERS Safety Report 5871438-0 (Version None)
Quarter: 2008Q3

REPORT INFORMATION
  Report Type: 
  Country: None (occurrence: None)
  Receive Date: 20080905
  Receipt Date: 20080829
  Transmission Date: 20090109
  Serious: Yes (Other)
  Sender: FDA-Public Use
  Company Number: PHHY2008AU17874

PATIENT
  Age: 81 Year
  Sex: Female

DRUGS (6)
  1. EXELON [Suspect]
     Indication: DEMENTIA ALZHEIMER'S TYPE
     Dosage: 10 CM2 PATCH, DAILY
     Route: 062
     Dates: start: 20080721, end: 20080721
  2. AURORIX [Concomitant]
     Dosage: 150 MG, MANE
     Dates: start: 20080601
  3. PLAVIX [Concomitant]
     Dosage: 75 MG, MANE
  4. CALTRATE [Concomitant]
     Dosage: 600 MG, DAILY
  5. OSTEOVIT [Concomitant]
     Dosage: 1000 UNK, DAILY
  6. EPILIM [Concomitant]
     Dosage: 100 MG, DAILY

REACTIONS (3)
  - COGNITIVE DISORDER [None]
  - DRUG LEVEL BELOW THERAPEUTIC [None]
  - MUSCLE RIGIDITY [None]
